FAERS Safety Report 24676954 (Version 1)
Quarter: 2024Q4

REPORT INFORMATION
  Report Type: Spontaneous
  Country: CN (occurrence: CN)
  Receive Date: 20241128
  Receipt Date: 20241128
  Transmission Date: 20250115
  Serious: Yes (Hospitalization, Other)
  Sender: ABBVIE
  Company Number: CN-ABBOTT-2024A-1392580

PATIENT
  Age: 66 Year
  Sex: Female
  Weight: 60.45 kg

DRUGS (2)
  1. FENOFIBRATE [Suspect]
     Active Substance: FENOFIBRATE
     Indication: Gout
     Dosage: (FENOFIBRATE CAPSULES)
     Route: 048
     Dates: start: 20240821, end: 20240901
  2. FEBUXOSTAT [Suspect]
     Active Substance: FEBUXOSTAT
     Indication: Hyperlipidaemia
     Route: 048
     Dates: start: 20240828, end: 20240901

REACTIONS (1)
  - Erythema multiforme [Recovering/Resolving]

NARRATIVE: CASE EVENT DATE: 20240901
